FAERS Safety Report 15470615 (Version 1)
Quarter: 2018Q4

REPORT INFORMATION
  Report Type: Report from Study
  Country: US (occurrence: US)
  Receive Date: 20181005
  Receipt Date: 20181005
  Transmission Date: 20190205
  Serious: Yes (Hospitalization)
  Sender: FDA-Public Use
  Company Number: US-ACTELION-A-NJ2018-167067

PATIENT
  Age: 72 Year
  Sex: Female
  Weight: 77.55 kg

DRUGS (2)
  1. OPSUMIT [Suspect]
     Active Substance: MACITENTAN
     Indication: PULMONARY ARTERIAL HYPERTENSION
     Dosage: 10 MG, QD
     Route: 048
  2. VELETRI [Suspect]
     Active Substance: EPOPROSTENOL
     Indication: PULMONARY ARTERIAL HYPERTENSION
     Dosage: 35.56 NG/KG, PER MIN
     Route: 042

REACTIONS (10)
  - Diarrhoea [Unknown]
  - Vomiting [Unknown]
  - Urinary tract infection [Unknown]
  - Dyspnoea [Unknown]
  - Weight decreased [Unknown]
  - Therapy change [Unknown]
  - Respiratory tract infection [Unknown]
  - Nausea [Unknown]
  - Neuropathy peripheral [Unknown]
  - Malaise [Unknown]

NARRATIVE: CASE EVENT DATE: 20180522
